FAERS Safety Report 10194248 (Version 1)
Quarter: 2014Q2

REPORT INFORMATION
  Report Type: Spontaneous
  Country: US (occurrence: US)
  Receive Date: 20140525
  Receipt Date: 20140525
  Transmission Date: 20141212
  Serious: Yes (Other)
  Sender: FDA-Public Use
  Company Number: US-BRISTOL-MYERS SQUIBB COMPANY-20756219

PATIENT
  Age: 62 Year
  Sex: Male
  Weight: 115.64 kg

DRUGS (2)
  1. BYETTA PEN DISPOSABLE [Suspect]
  2. LANTUS [Concomitant]

REACTIONS (4)
  - Non-Hodgkin^s lymphoma [Unknown]
  - Leukaemia [Unknown]
  - Drug dose omission [Unknown]
  - Product quality issue [Unknown]
